FAERS Safety Report 21409295 (Version 2)
Quarter: 2022Q4

REPORT INFORMATION
  Report Type: Report from Study
  Country: US (occurrence: US)
  Receive Date: 20221004
  Receipt Date: 20221005
  Transmission Date: 20230112
  Serious: Yes (Hospitalization)
  Sender: FDA-Public Use
  Company Number: US-REGENERON PHARMACEUTICALS, INC.-2022-059398

PATIENT
  Age: 64 Year
  Sex: Male

DRUGS (4)
  1. CEMIPLIMAB [Suspect]
     Active Substance: CEMIPLIMAB
     Indication: Product used for unknown indication
     Dosage: 350 MILLIGRAM, EVERY 3 WEEK
     Route: 042
     Dates: start: 20220228, end: 20220228
  2. CEMIPLIMAB [Suspect]
     Active Substance: CEMIPLIMAB
     Dosage: 350 MILLIGRAM, EVERY 3 WEEK
     Route: 042
     Dates: start: 20220411, end: 20220411
  3. INVESTIGATIONAL PRODUCT [Suspect]
     Active Substance: INVESTIGATIONAL PRODUCT
     Indication: Product used for unknown indication
     Dosage: 100 MICROGRAM
     Route: 058
     Dates: start: 20220221, end: 20220411
  4. INVESTIGATIONAL PRODUCT [Suspect]
     Active Substance: INVESTIGATIONAL PRODUCT
     Indication: Product used for unknown indication
     Dosage: 100 MICROGRAM
     Route: 058
     Dates: start: 20220221, end: 20220411

REACTIONS (2)
  - Vertigo [Recovered/Resolved]
  - Pneumonia [Recovered/Resolved]

NARRATIVE: CASE EVENT DATE: 20220419
